FAERS Safety Report 16716132 (Version 1)
Quarter: 2019Q3

REPORT INFORMATION
  Report Type: Spontaneous
  Country: FR (occurrence: FR)
  Receive Date: 20190819
  Receipt Date: 20190819
  Transmission Date: 20191005
  Serious: Yes (Other)
  Sender: FDA-Public Use
  Company Number: FR-MYLANLABS-2019M1076994

PATIENT
  Age: 62 Year
  Sex: Female
  Weight: 65 kg

DRUGS (12)
  1. CEFTAZIDIME. [Suspect]
     Active Substance: CEFTAZIDIME
     Indication: INFECTION
     Dosage: 6 GRAM, QD
     Route: 042
     Dates: start: 20190215, end: 20190223
  2. LANSOPRAZOLE. [Suspect]
     Active Substance: LANSOPRAZOLE
     Indication: PROPHYLAXIS
     Dosage: 15 MILLIGRAM, QD
     Route: 048
     Dates: start: 20190219, end: 20190223
  3. ZOPHREN                            /00955302/ [Suspect]
     Active Substance: ONDANSETRON
     Indication: NAUSEA
     Dosage: 1 DOSAGE FORM, QD
     Route: 042
     Dates: start: 20190207, end: 20190223
  4. MORPHINE [Concomitant]
     Active Substance: MORPHINE
     Indication: PAIN
     Dosage: 2 MILLIGRAM, QH
     Route: 042
     Dates: start: 20190220, end: 20190223
  5. ACICLOVIR [Suspect]
     Active Substance: ACYCLOVIR
     Indication: APLASIA
     Dosage: 750 MILLIGRAM, QD
     Route: 042
     Dates: start: 20190220, end: 20190223
  6. HEPARINE SODIQUE [Concomitant]
     Active Substance: HEPARIN SODIUM
     Indication: PROPHYLAXIS
     Dosage: 5000 INTERNATIONAL UNIT, QD
     Route: 042
     Dates: start: 20190207, end: 20190223
  7. ZARZIO [Concomitant]
     Active Substance: FILGRASTIM
     Indication: NEUTROPENIA
     Dosage: 1 DOSAGE FORM, QD
     Route: 042
     Dates: start: 20190218
  8. CELLCEPT [Concomitant]
     Active Substance: MYCOPHENOLATE MOFETIL\MYCOPHENOLATE MOFETIL HYDROCHLORIDE
     Indication: PROPHYLAXIS AGAINST TRANSPLANT REJECTION
     Dosage: 1 GRAM, QD
     Route: 042
     Dates: start: 20190217
  9. CHOLURSO [Concomitant]
     Active Substance: URSODIOL
     Dosage: 3 DOSAGE FORM, QD
     Route: 048
     Dates: start: 20190212
  10. METOCLOPRAMIDE. [Suspect]
     Active Substance: METOCLOPRAMIDE
     Indication: NAUSEA
     Dosage: 120 MILLIGRAM, QD
     Route: 048
     Dates: start: 20190207, end: 20190223
  11. SANDIMMUN [Concomitant]
     Active Substance: CYCLOSPORINE
     Indication: PROPHYLAXIS AGAINST TRANSPLANT REJECTION
     Dosage: 1 DOSAGE FORM, QD
     Route: 042
     Dates: start: 20190217
  12. NOXAFIL [Concomitant]
     Active Substance: POSACONAZOLE
     Indication: ANTIFUNGAL PROPHYLAXIS
     Dosage: 300 MILLIGRAM, QD
     Route: 042
     Dates: start: 20190222

REACTIONS (3)
  - Seizure like phenomena [Recovered/Resolved]
  - Coma [Recovered/Resolved]
  - Clonus [Recovered/Resolved]

NARRATIVE: CASE EVENT DATE: 20190223
